FAERS Safety Report 12620691 (Version 1)
Quarter: 2016Q3

REPORT INFORMATION
  Report Type: Spontaneous
  Country: FR (occurrence: FR)
  Receive Date: 20160804
  Receipt Date: 20160804
  Transmission Date: 20161109
  Serious: Yes (Hospitalization, Other)
  Sender: FDA-Public Use
  Company Number: FR-AMGEN-FRASP2016099837

PATIENT
  Age: 88 Year
  Sex: Female

DRUGS (6)
  1. CANDESARTAN CILEXETIL. [Concomitant]
     Active Substance: CANDESARTAN CILEXETIL
     Dosage: UNK
  2. PREVISCAN [Concomitant]
     Active Substance: FLUINDIONE
     Dosage: UNK
  3. BISOPROLOL FUMARATE. [Suspect]
     Active Substance: BISOPROLOL FUMARATE
     Indication: ATRIAL FIBRILLATION
     Dosage: UNK
     Route: 048
     Dates: end: 20160420
  4. PROCORALAN [Suspect]
     Active Substance: IVABRADINE
     Indication: PRODUCT USED FOR UNKNOWN INDICATION
     Dosage: 5 MG, BID
     Route: 048
     Dates: end: 20160420
  5. LASILIX [Suspect]
     Active Substance: FUROSEMIDE
     Indication: CARDIAC FAILURE
     Dosage: 120 MG, QD
     Route: 048
     Dates: start: 2016, end: 20160420
  6. DISCOTRINE [Concomitant]
     Active Substance: NITROGLYCERIN
     Dosage: UNK

REACTIONS (15)
  - Decreased appetite [Unknown]
  - Xerosis [Unknown]
  - Rash [Unknown]
  - International normalised ratio increased [Recovered/Resolved]
  - Bundle branch block left [Unknown]
  - Malaise [Recovered/Resolved]
  - Haemoglobin decreased [Unknown]
  - Hyponatraemia [Not Recovered/Not Resolved]
  - General physical health deterioration [Not Recovered/Not Resolved]
  - Acute kidney injury [Recovering/Resolving]
  - Gait disturbance [Unknown]
  - Coma [Unknown]
  - Dyspnoea [Recovered/Resolved]
  - Bradycardia [Recovered/Resolved]
  - Vomiting [Recovered/Resolved]

NARRATIVE: CASE EVENT DATE: 2016
